FAERS Safety Report 6407903-7 (Version None)
Quarter: 2009Q4

REPORT INFORMATION
  Report Type: 
  Country: None (occurrence: None)
  Receive Date: 20091016
  Receipt Date: 20091001
  Transmission Date: 20100525
  Serious: Yes (Other)
  Sender: FDA-Public Use
  Company Number: DSA_41790_2009

PATIENT
  Sex: Male

DRUGS (2)
  1. ENALAPRIL MALEATE [Suspect]
     Indication: HYPERTENSION
     Dosage: (DF ORAL)
     Route: 048
  2. INDAPAMIDE [Suspect]
     Indication: HYPERTENSION
     Dosage: (DF)

REACTIONS (9)
  - BALANCE DISORDER [None]
  - COORDINATION ABNORMAL [None]
  - DYSPNOEA [None]
  - FALL [None]
  - FATIGUE [None]
  - GAIT DISTURBANCE [None]
  - MUSCULAR WEAKNESS [None]
  - POLYNEUROPATHY [None]
  - VITAMIN B12 DEFICIENCY [None]
